FAERS Safety Report 4520909-8 (Version None)
Quarter: 2004Q4

REPORT INFORMATION
  Report Type: 
  Country: None (occurrence: None)
  Receive Date: 20041203
  Receipt Date: 20041119
  Transmission Date: 20050328
  Serious: Yes (Hospitalization)
  Sender: FDA-Public Use
  Company Number: 2004097612

PATIENT
  Age: 67 Year
  Sex: Female
  Weight: 60 kg

DRUGS (1)
  1. BEXTRA [Suspect]
     Indication: PAIN
     Dosage: 40 MG (20 MG, 1 IN 12 HR), ORAL
     Route: 048
     Dates: start: 20040202, end: 20040331

REACTIONS (4)
  - EXANTHEM [None]
  - PRURITUS [None]
  - RASH MACULAR [None]
  - URTICARIA [None]
